FAERS Safety Report 8282500-X (Version None)
Quarter: 2012Q2

REPORT INFORMATION
  Report Type: 
  Country: None (occurrence: None)
  Receive Date: 20120413
  Receipt Date: 20120402
  Transmission Date: 20120825
  Serious: Yes (Other)
  Sender: FDA-Public Use
  Company Number: US-SANOFI-AVENTIS-2012SA018190

PATIENT
  Age: 66 Year
  Sex: Female
  Weight: 79 kg

DRUGS (3)
  1. SOLOSTAR [Suspect]
     Indication: TYPE 2 DIABETES MELLITUS
     Dates: start: 20080101
  2. LANTUS [Suspect]
     Dosage: DOSE:22 UNIT(S)
     Route: 058
     Dates: start: 20080101
  3. LANTUS [Suspect]
     Indication: TYPE 2 DIABETES MELLITUS
     Dosage: DOSE:30 UNIT(S)
     Route: 058

REACTIONS (3)
  - ATRIAL FIBRILLATION [None]
  - FALL [None]
  - TENDON INJURY [None]
